FAERS Safety Report 18579086 (Version 1)
Quarter: 2020Q4

REPORT INFORMATION
  Report Type: Report from Study
  Country: IN (occurrence: IN)
  Receive Date: 20201204
  Receipt Date: 20201204
  Transmission Date: 20210114
  Serious: Yes (Hospitalization)
  Sender: FDA-Public Use
  Company Number: NVSC2020IN098316

PATIENT
  Age: 71 Year
  Sex: Male

DRUGS (2)
  1. VYMADA [Suspect]
     Active Substance: SACUBITRIL\VALSARTAN
     Indication: CARDIAC FAILURE CONGESTIVE
     Dosage: 1 DF, BID
     Route: 065
     Dates: start: 20200302
  2. VYMADA [Suspect]
     Active Substance: SACUBITRIL\VALSARTAN
     Indication: CARDIAC FAILURE
     Dosage: 50 MG, BID
     Route: 048
     Dates: start: 202003

REACTIONS (4)
  - Prescribed underdose [Unknown]
  - Lung disorder [Unknown]
  - Wrong technique in product usage process [Unknown]
  - COVID-19 [Unknown]

NARRATIVE: CASE EVENT DATE: 20200302
